FAERS Safety Report 8343130-4 (Version None)
Quarter: 2012Q2

REPORT INFORMATION
  Report Type: 
  Country: None (occurrence: None)
  Receive Date: 20120503
  Receipt Date: 20120503
  Transmission Date: 20120825
  Serious: Yes (Other)
  Sender: FDA-Public Use
  Company Number: None

PATIENT
  Sex: Male

DRUGS (1)
  1. ADDERALL 20 [Suspect]
     Indication: ATTENTION DEFICIT/HYPERACTIVITY DISORDER
     Dosage: 20MG TWICE DAILY ORAL
     Route: 048
     Dates: start: 20110601, end: 20111201

REACTIONS (2)
  - PRODUCT SUBSTITUTION ISSUE [None]
  - VOMITING [None]
